FAERS Safety Report 8164492-7 (Version None)
Quarter: 2012Q1

REPORT INFORMATION
  Report Type: 
  Country: None (occurrence: None)
  Receive Date: 20120224
  Receipt Date: 20120220
  Transmission Date: 20120608
  Serious: Yes (Life-Threatening)
  Sender: FDA-Public Use
  Company Number: FR-ASTRAZENECA-2012SE11854

PATIENT
  Age: 75 Year
  Sex: Female

DRUGS (8)
  1. XYLOCAINE [Suspect]
     Indication: INDUCTION OF ANAESTHESIA
     Dosage: ONCE/SINGLE ADMINISTRATION
     Route: 042
     Dates: start: 20111116, end: 20111116
  2. ALFENTANIL [Suspect]
     Indication: INDUCTION OF ANAESTHESIA
     Dosage: ONCE/SINGLE ADMINISTRATION
     Route: 042
     Dates: start: 20111116, end: 20111116
  3. STRUCTUM [Concomitant]
  4. LEVOTHYROXINE SODIUM [Concomitant]
     Indication: HYPOTHYROIDISM
  5. DIPRIVAN [Suspect]
     Indication: INDUCTION OF ANAESTHESIA
     Dosage: ONCE/SINGLE ADMINISTRATION
     Route: 042
     Dates: start: 20111116, end: 20111116
  6. LANSOPRAZOLE [Concomitant]
  7. CELOCURINE [Suspect]
     Indication: INDUCTION OF ANAESTHESIA
     Dosage: ONCE/SINGLE ADMINISTRATION
     Route: 042
     Dates: start: 20111116, end: 20111116
  8. RALOXIFENE [Concomitant]

REACTIONS (1)
  - ANAPHYLACTIC SHOCK [None]
